FAERS Safety Report 11092811 (Version 1)
Quarter: 2015Q2

REPORT INFORMATION
  Report Type: Spontaneous
  Country: BR (occurrence: BR)
  Receive Date: 20150506
  Receipt Date: 20150506
  Transmission Date: 20150821
  Serious: Yes (Hospitalization, Other)
  Sender: FDA-Public Use
  Company Number: BR-JNJFOC-20150423876

PATIENT
  Age: 37 Year
  Sex: Female

DRUGS (5)
  1. REMICADE [Suspect]
     Active Substance: INFLIXIMAB
     Indication: CROHN^S DISEASE
     Route: 042
     Dates: start: 20150205
  2. ALLURENE [Concomitant]
     Active Substance: DIENOGEST
     Indication: ENDOMETRIOSIS
     Route: 065
  3. REMICADE [Suspect]
     Active Substance: INFLIXIMAB
     Indication: CROHN^S DISEASE
     Route: 042
     Dates: start: 20140624
  4. REMICADE [Suspect]
     Active Substance: INFLIXIMAB
     Indication: COLITIS
     Route: 042
     Dates: start: 20140624
  5. REMICADE [Suspect]
     Active Substance: INFLIXIMAB
     Indication: COLITIS
     Route: 042
     Dates: start: 20150205

REACTIONS (3)
  - Pneumonia [Recovering/Resolving]
  - Pain [Recovering/Resolving]
  - Herpes ophthalmic [Not Recovered/Not Resolved]

NARRATIVE: CASE EVENT DATE: 20150327
